FAERS Safety Report 4619283-8 (Version None)
Quarter: 2005Q1

REPORT INFORMATION
  Report Type: 
  Country: None (occurrence: None)
  Receive Date: 20050318
  Receipt Date: 20050318
  Transmission Date: 20050727
  Serious: Yes (Hospitalization)
  Sender: FDA-Public Use
  Company Number: None

PATIENT
  Sex: Female
  Weight: 66.6788 kg

DRUGS (21)
  1. COUMADIN [Suspect]
     Indication: CARDIAC DISORDER
     Dosage: 5 MG QD PO [PRIOR TO ADMISSION]
     Route: 048
  2. LASIX [Concomitant]
  3. DETROL [Concomitant]
  4. PREVACID [Concomitant]
  5. AXID [Concomitant]
  6. METAMUCIL-2 [Concomitant]
  7. MIACALCIN [Concomitant]
  8. CITRICAL [Concomitant]
  9. VIT C [Concomitant]
  10. SYNTHROID [Concomitant]
  11. TYLENOL (CAPLET) [Concomitant]
  12. PERI-COLACE [Concomitant]
  13. ARICEPT [Concomitant]
  14. ZOLOFT [Concomitant]
  15. SLOW FE [Concomitant]
  16. POTASSIUM CHLORIDE [Concomitant]
  17. NITROSTAT [Concomitant]
  18. DIGOXIN [Concomitant]
  19. CARDIZEM SR [Concomitant]
  20. TOPROL-XL [Concomitant]
  21. ACCUPRIL [Concomitant]

REACTIONS (1)
  - COAGULOPATHY [None]
